FAERS Safety Report 5444586-7 (Version None)
Quarter: 2007Q3

REPORT INFORMATION
  Report Type: 
  Country: None (occurrence: None)
  Receive Date: 20070906
  Receipt Date: 20070829
  Transmission Date: 20080115
  Serious: Yes (Death, Hospitalization)
  Sender: FDA-Public Use
  Company Number: US-SANOFI-SYNTHELABO-F03200700164

PATIENT
  Sex: Female

DRUGS (28)
  1. DECADRON [Concomitant]
     Dosage: UNK
     Route: 065
  2. SODIUM CHLORIDE [Concomitant]
     Dosage: UNK
     Route: 065
  3. APREPITANT [Concomitant]
     Dosage: UNK
     Route: 065
     Dates: start: 20070607
  4. BENADRYL [Concomitant]
     Dosage: UNK
     Route: 065
     Dates: start: 20070530
  5. ZOFRAN [Concomitant]
     Dosage: UNK
     Route: 065
  6. XALATAN [Concomitant]
     Dosage: UNK
     Route: 047
  7. PHENERGAN HCL [Concomitant]
     Dosage: UNK
     Route: 065
     Dates: start: 20070611
  8. PREVACID [Concomitant]
     Dosage: UNK
     Route: 065
     Dates: start: 20070611
  9. REGLAN [Concomitant]
     Dosage: UNK
     Route: 065
  10. POTASSIUM NOS [Concomitant]
     Dosage: UNK
     Route: 065
  11. PSYLLIUM SEED HUSK [Concomitant]
     Dosage: UNK
     Route: 048
  12. MAGNESIUM OXIDE [Concomitant]
     Dosage: UNK
     Route: 065
  13. LORAZEPAM [Concomitant]
     Dosage: UNK
     Route: 065
  14. LUTORAL [Concomitant]
     Dosage: UNK
     Route: 065
  15. LONOX [Concomitant]
     Dosage: UNK
     Route: 065
     Dates: start: 20070607
  16. LEVAQUIN [Concomitant]
     Dosage: UNK
     Route: 065
  17. LORTAB [Concomitant]
     Dosage: UNK
     Route: 048
  18. CHONDROITIN [Concomitant]
     Dosage: UNK
     Route: 048
  19. GLUCOSAMINE [Concomitant]
     Dosage: UNK
     Route: 065
  20. DIFLUCAN [Concomitant]
     Dosage: UNK
     Route: 065
  21. ECOTRIN [Concomitant]
     Dosage: UNK
     Route: 048
  22. CENTRUM SILVER [Concomitant]
     Dosage: UNK
     Route: 048
  23. ACYCLOVIR [Concomitant]
     Dosage: UNK
     Route: 065
  24. ACTONEL [Concomitant]
     Dosage: UNK
     Route: 065
  25. LEUCOVORIN CALCIUM [Suspect]
     Indication: COLORECTAL CANCER METASTATIC
     Route: 042
     Dates: start: 20070711, end: 20070711
  26. FLUOROURACIL [Suspect]
     Indication: COLORECTAL CANCER METASTATIC
     Route: 042
     Dates: start: 20070711, end: 20070711
  27. BEVACIZUMAB [Suspect]
     Indication: COLORECTAL CANCER METASTATIC
     Route: 042
     Dates: start: 20070711, end: 20070711
  28. OXALIPLATIN [Suspect]
     Indication: COLORECTAL CANCER METASTATIC
     Route: 042
     Dates: start: 20070711, end: 20070711

REACTIONS (2)
  - SEPSIS [None]
  - STOMATITIS [None]
